FAERS Safety Report 5467001-6 (Version None)
Quarter: 2007Q3

REPORT INFORMATION
  Report Type: 
  Country: None (occurrence: None)
  Receive Date: 20070925
  Receipt Date: 20070917
  Transmission Date: 20080115
  Serious: Yes (Other)
  Sender: FDA-Public Use
  Company Number: A0670180A

PATIENT
  Age: 41 Year
  Sex: Female
  Weight: 54.5 kg

DRUGS (2)
  1. LAMICTAL [Suspect]
     Indication: BIPOLAR DISORDER
     Route: 065
     Dates: start: 20060515, end: 20070814
  2. MARIJUANA [Suspect]
     Route: 065
     Dates: end: 20070814

REACTIONS (7)
  - AGITATION [None]
  - DEPRESSION [None]
  - EMOTIONAL DISTRESS [None]
  - HYPERSEXUALITY [None]
  - IMPULSE-CONTROL DISORDER [None]
  - MANIA [None]
  - WEIGHT DECREASED [None]
